FAERS Safety Report 24347934 (Version 4)
Quarter: 2025Q3

REPORT INFORMATION
  Report Type: Report from Study
  Country: US (occurrence: US)
  Receive Date: 20240923
  Receipt Date: 20250715
  Transmission Date: 20251021
  Serious: Yes (Other)
  Sender: ABBVIE
  Company Number: US-ABBVIE-5930470

PATIENT
  Age: 73 Year
  Sex: Female

DRUGS (1)
  1. SKYRIZI [Suspect]
     Active Substance: RISANKIZUMAB-RZAA
     Indication: Psoriatic arthropathy
     Route: 058
     Dates: start: 20220804, end: 202404

REACTIONS (5)
  - Knee operation [Recovering/Resolving]
  - Psoriatic arthropathy [Recovering/Resolving]
  - Knee arthroplasty [Recovered/Resolved]
  - Knee arthroplasty [Recovered/Resolved]
  - Infection [Recovering/Resolving]

NARRATIVE: CASE EVENT DATE: 20240601
